FAERS Safety Report 5865303-2 (Version None)
Quarter: 2008Q3

REPORT INFORMATION
  Report Type: 
  Country: None (occurrence: None)
  Receive Date: 20080829
  Receipt Date: 20080821
  Transmission Date: 20090109
  Serious: Yes (Hospitalization)
  Sender: FDA-Public Use
  Company Number: JP-MERCK-0808USA04746

PATIENT
  Age: 58 Year
  Sex: Male

DRUGS (10)
  1. ZETIA [Suspect]
     Indication: HYPERCHOLESTEROLAEMIA
     Route: 048
     Dates: start: 20080419, end: 20080711
  2. ASPIRIN [Concomitant]
     Route: 065
     Dates: start: 20080327
  3. ATORVASTATIN [Concomitant]
     Route: 065
     Dates: start: 20080328
  4. LANSOPRAZOLE [Concomitant]
     Route: 065
     Dates: start: 20080328
  5. SPIRONOLACTONE [Concomitant]
     Route: 065
     Dates: start: 20080402, end: 20080601
  6. FUROSEMIDE [Concomitant]
     Route: 065
     Dates: start: 20080402
  7. NICORANDIL [Concomitant]
     Route: 065
     Dates: start: 20080403
  8. CARVEDILOL [Concomitant]
     Route: 065
     Dates: start: 20080404
  9. COZAAR [Concomitant]
     Route: 065
     Dates: start: 20080404, end: 20080601
  10. CLOPIDOGREL BISULFATE [Concomitant]
     Route: 065
     Dates: start: 20080408, end: 20080629

REACTIONS (1)
  - ANAEMIA [None]
